FAERS Safety Report 11231121 (Version 1)
Quarter: 2015Q2

REPORT INFORMATION
  Report Type: Spontaneous
  Country: US (occurrence: None)
  Receive Date: 20150629
  Receipt Date: 20150629
  Transmission Date: 20150821
  Serious: Yes (Disabling)
  Sender: FDA-Public Use
  Company Number: None

PATIENT
  Age: 58 Year
  Sex: Male
  Weight: 53.98 kg

DRUGS (13)
  1. AMITRIPTYLINE [Suspect]
     Active Substance: AMITRIPTYLINE
     Indication: NERVOUS SYSTEM DISORDER
     Dosage: ONE PILL AT BED TIME ONCE DAILY
     Route: 048
     Dates: start: 20150618, end: 20150624
  2. LEVOTHYROXYN [Concomitant]
  3. C 500 MG [Concomitant]
  4. CITRACAL BONE DENSITY [Concomitant]
  5. MILK THRISTLE [Concomitant]
  6. PROBIOTIC [Concomitant]
     Active Substance: PROBIOTICS NOS
  7. ASPIRIN. [Concomitant]
     Active Substance: ASPIRIN
  8. MULTIVITAMIN CENTRUM SILVER [Concomitant]
  9. TEA [Concomitant]
     Active Substance: TEA LEAF
  10. PLAVIX [Concomitant]
     Active Substance: CLOPIDOGREL BISULFATE
  11. PRAVASTATIN [Concomitant]
     Active Substance: PRAVASTATIN\PRAVASTATIN SODIUM
  12. ICD IMPLANT [Concomitant]
  13. COTREXIN [Concomitant]

REACTIONS (4)
  - Dysuria [None]
  - Urine output decreased [None]
  - Burning sensation [None]
  - Testicular pain [None]

NARRATIVE: CASE EVENT DATE: 20150624
